FAERS Safety Report 9422025 (Version 2)
Quarter: 2013Q3

REPORT INFORMATION
  Report Type: Spontaneous
  Country: JP (occurrence: JP)
  Receive Date: 20130726
  Receipt Date: 20130828
  Transmission Date: 20140515
  Serious: Yes (Hospitalization, Other)
  Sender: FDA-Public Use
  Company Number: JP-009507513-1305JPN015319

PATIENT
  Sex: Female

DRUGS (2)
  1. FOSAMAC TABLETS 35MG [Suspect]
     Indication: OSTEOPOROSIS
     Dosage: 35 MG, QW
     Route: 048
     Dates: end: 201305
  2. FOSAMAC TABLETS 35MG [Suspect]
     Dosage: UNK
     Route: 048

REACTIONS (7)
  - Catheterisation cardiac [Unknown]
  - Palpitations [Unknown]
  - Cardiac pacemaker insertion [Unknown]
  - Blood pressure increased [Unknown]
  - Dry mouth [Unknown]
  - Abdominal discomfort [Unknown]
  - Abdominal discomfort [Unknown]
